FAERS Safety Report 7863833-5 (Version None)
Quarter: 2011Q4

REPORT INFORMATION
  Report Type: 
  Country: None (occurrence: None)
  Receive Date: 20111028
  Receipt Date: 20111024
  Transmission Date: 20120403
  Serious: No
  Sender: FDA-Public Use
  Company Number: US-BIOGENIDEC-2010BI019708

PATIENT
  Sex: Female

DRUGS (2)
  1. TYSABRI [Suspect]
     Indication: MULTIPLE SCLEROSIS
     Route: 042
     Dates: start: 20061220, end: 20100201
  2. TYSABRI [Suspect]
     Route: 042
     Dates: start: 20100706

REACTIONS (8)
  - MULTIPLE SCLEROSIS [None]
  - MUSCULOSKELETAL STIFFNESS [None]
  - MUSCLE SPASMS [None]
  - DRUG INEFFECTIVE [None]
  - DIZZINESS [None]
  - BONE PAIN [None]
  - MULTIPLE SCLEROSIS RELAPSE [None]
  - KIDNEY INFECTION [None]
